FAERS Safety Report 5943161-5 (Version None)
Quarter: 2008Q4

REPORT INFORMATION
  Report Type: 
  Country: None (occurrence: None)
  Receive Date: 20081106
  Receipt Date: 20081030
  Transmission Date: 20090506
  Serious: Yes (Congenital Anomaly)
  Sender: FDA-Public Use
  Company Number: A0752227A

PATIENT
  Sex: Female
  Weight: 3.2 kg

DRUGS (4)
  1. COMBIVIR [Suspect]
     Indication: HIV INFECTION
     Dates: start: 20080117, end: 20080620
  2. KALETRA [Concomitant]
     Indication: HIV INFECTION
     Dates: start: 20080117, end: 20080620
  3. VITAMIN AND MINERAL PRENATAL SUPPLEMENT W/ FOLIC ACID CAP [Concomitant]
  4. FLUCONAZOLE [Concomitant]

REACTIONS (2)
  - CONGENITAL ACROCHORDON [None]
  - DRUG EXPOSURE DURING PREGNANCY [None]
